FAERS Safety Report 5589472-7 (Version None)
Quarter: 2008Q1

REPORT INFORMATION
  Report Type: 
  Country: None (occurrence: None)
  Receive Date: 20080110
  Receipt Date: 20080110
  Transmission Date: 20080703
  Serious: Yes (Other)
  Sender: FDA-Public Use
  Company Number: None

PATIENT
  Age: 58 Year
  Sex: Male

DRUGS (2)
  1. DULOXETINE 60MG [Suspect]
     Dosage: 60MG X1 PO
     Route: 048
     Dates: start: 20071108
  2. WARFARIN SODIUM [Suspect]
     Indication: MITRAL VALVE INCOMPETENCE
     Dosage: STABLE DOSE MANY YEARS

REACTIONS (1)
  - INTERNATIONAL NORMALISED RATIO INCREASED [None]
